FAERS Safety Report 17205576 (Version 1)
Quarter: 2019Q4

REPORT INFORMATION
  Report Type: Spontaneous
  Country: US (occurrence: US)
  Receive Date: 20191227
  Receipt Date: 20191227
  Transmission Date: 20200122
  Serious: Yes (Other)
  Sender: FDA-Public Use
  Company Number: US-ROCHE-2367733

PATIENT
  Sex: Male

DRUGS (6)
  1. ESBRIET [Suspect]
     Active Substance: PIRFENIDONE
     Indication: IDIOPATHIC PULMONARY FIBROSIS
     Dosage: ONE PILL, 3 TIMES A DAY
     Route: 048
  2. VENTOLIN [Concomitant]
     Active Substance: ALBUTEROL SULFATE
  3. ZYRTEC [Concomitant]
     Active Substance: CETIRIZINE HYDROCHLORIDE
  4. XANAX [Concomitant]
     Active Substance: ALPRAZOLAM
  5. GARLIQUE [Concomitant]
     Active Substance: GARLIC
  6. LEVOTHYROXINE. [Concomitant]
     Active Substance: LEVOTHYROXINE
     Route: 065

REACTIONS (10)
  - Infection [Unknown]
  - Weight fluctuation [Not Recovered/Not Resolved]
  - Vascular dementia [Unknown]
  - Dizziness [Recovered/Resolved with Sequelae]
  - Withdrawal syndrome [Recovered/Resolved]
  - Malaise [Unknown]
  - Depressed mood [Unknown]
  - Insomnia [Unknown]
  - Appetite disorder [Unknown]
  - Dizziness [Not Recovered/Not Resolved]
